FAERS Safety Report 7825735-X (Version None)
Quarter: 2011Q4

REPORT INFORMATION
  Report Type: 
  Country: None (occurrence: None)
  Receive Date: 20111019
  Receipt Date: 20111008
  Transmission Date: 20120403
  Serious: Yes (Other)
  Sender: FDA-Public Use
  Company Number: PHHY2011BR89508

PATIENT
  Sex: Male

DRUGS (1)
  1. RASILEZ AMLO [Suspect]
     Dosage: 300/10 MG

REACTIONS (3)
  - DIABETES MELLITUS [None]
  - OEDEMA PERIPHERAL [None]
  - PAIN [None]
